APPROVED DRUG PRODUCT: CEFOTAN
Active Ingredient: CEFOTETAN DISODIUM
Strength: EQ 10GM BASE/VIAL **Federal Register determination that product was not discontinued or withdrawn for safety or effectiveness reasons**
Dosage Form/Route: INJECTABLE;INJECTION
Application: N050588 | Product #003
Applicant: PAI HOLDINGS LLC DBA PHARMACEUTICAL ASSOCIATES INC
Approved: Apr 25, 1988 | RLD: No | RS: No | Type: DISCN